FAERS Safety Report 25631728 (Version 2)
Quarter: 2025Q3

REPORT INFORMATION
  Report Type: Report from Study
  Country: US (occurrence: US)
  Receive Date: 20250801
  Receipt Date: 20250905
  Transmission Date: 20251021
  Serious: Yes (Hospitalization)
  Sender: PARATEK PHARMACEUTICALS
  Company Number: US-PARATEK PHARMACEUTICALS, INC.-2025PTK00926

PATIENT
  Age: 30 Year
  Sex: Male

DRUGS (5)
  1. NUZYRA [Suspect]
     Active Substance: OMADACYCLINE
     Indication: Skin ulcer
     Dosage: 450 MG, 1X/DAY FOR TWO DAYS
     Route: 048
     Dates: start: 202507, end: 202507
  2. NUZYRA [Suspect]
     Active Substance: OMADACYCLINE
     Indication: Polyneuropathy
     Dosage: 300 MG, 1X/DAY
     Route: 048
     Dates: start: 202507
  3. NUZYRA [Suspect]
     Active Substance: OMADACYCLINE
     Indication: Cellulitis
  4. NUZYRA [Suspect]
     Active Substance: OMADACYCLINE
     Indication: Enterococcal infection
  5. NUZYRA [Suspect]
     Active Substance: OMADACYCLINE
     Indication: Peptostreptococcus infection

REACTIONS (4)
  - Cellulitis [Unknown]
  - Enterococcal infection [Unknown]
  - Peptostreptococcus infection [Unknown]
  - Drug ineffective for unapproved indication [Unknown]

NARRATIVE: CASE EVENT DATE: 20250716
